FAERS Safety Report 6135935-5 (Version None)
Quarter: 2009Q1

REPORT INFORMATION
  Report Type: 
  Country: None (occurrence: None)
  Receive Date: 20090329
  Receipt Date: 20080827
  Transmission Date: 20090719
  Serious: No
  Sender: FDA-Public Use
  Company Number: US-BAUSCH-2008BL003729

PATIENT
  Age: 74 Year
  Sex: Male

DRUGS (3)
  1. LEVOBUNOLOL HYDROCHLORIDE [Suspect]
     Indication: INTRAOCULAR PRESSURE INCREASED
     Route: 047
     Dates: start: 20080101, end: 20080817
  2. LEVOBUNOLOL HYDROCHLORIDE [Suspect]
     Route: 047
     Dates: start: 20080818, end: 20080827
  3. LISINOPRIL [Concomitant]
     Indication: HYPERTENSION

REACTIONS (2)
  - EYE IRRITATION [None]
  - MEDICATION ERROR [None]
